FAERS Safety Report 8803369 (Version 2)
Quarter: 2013Q1

REPORT INFORMATION
  Report Type: Spontaneous
  Country: BR (occurrence: BR)
  Receive Date: 20120924
  Receipt Date: 20130221
  Transmission Date: 20140127
  Serious: Yes (Death)
  Sender: FDA-Public Use
  Company Number: PHHY2012BR082244

PATIENT
  Sex: Female

DRUGS (4)
  1. DIOVAN TRIPLE [Suspect]
     Indication: HYPERTENSION
     Dosage: 1 DF, QD
  2. BROMAZEPAM [Concomitant]
     Indication: SEDATIVE THERAPY
     Dosage: 1 DF, (AT NIGHT)
  3. ARTROLIVE [Concomitant]
     Indication: ARTHRITIS
     Dosage: 1 DF, TID
  4. ARTROLIVE [Concomitant]
     Indication: OSTEOARTHRITIS

REACTIONS (1)
  - Aortic aneurysm rupture [Fatal]
